FAERS Safety Report 8003054-9 (Version None)
Quarter: 2011Q4

REPORT INFORMATION
  Report Type: 
  Country: None (occurrence: None)
  Receive Date: 20111222
  Receipt Date: 20111219
  Transmission Date: 20120403
  Serious: Yes (Other)
  Sender: FDA-Public Use
  Company Number: US-ELI_LILLY_AND_COMPANY-US201106007286

PATIENT
  Sex: Male

DRUGS (3)
  1. HUMALOG [Suspect]
     Indication: TYPE 1 DIABETES MELLITUS
     Dosage: 12 U, TID
     Route: 058
     Dates: start: 20080701
  2. HUMALOG [Suspect]
     Dosage: UNK UNK, PRN
     Route: 058
     Dates: start: 20080701
  3. LANTUS [Concomitant]
     Dosage: UNK

REACTIONS (10)
  - LEG AMPUTATION [None]
  - SKIN CANCER [None]
  - INCORRECT DOSE ADMINISTERED [None]
  - CATARACT [None]
  - EYE OPERATION [None]
  - NEUROPATHY PERIPHERAL [None]
  - SURGERY [None]
  - HYPERLIPIDAEMIA [None]
  - HYPERTENSION [None]
  - BLOOD GLUCOSE INCREASED [None]
